FAERS Safety Report 25364552 (Version 2)
Quarter: 2025Q2

REPORT INFORMATION
  Report Type: Report from Study
  Country: MY (occurrence: MY)
  Receive Date: 20250527
  Receipt Date: 20250611
  Transmission Date: 20250716
  Serious: Yes (Death, Other)
  Sender: PFIZER
  Company Number: MY-TAKEDA-2024TUS017501

PATIENT
  Age: 19 Year
  Sex: Male

DRUGS (29)
  1. ADCETRIS [Suspect]
     Active Substance: BRENTUXIMAB VEDOTIN
     Indication: Peripheral T-cell lymphoma unspecified
     Dosage: 100 MG, EVERY 3 WEEKS (1ST CYCLE)
     Route: 042
     Dates: start: 20231123
  2. ADCETRIS [Suspect]
     Active Substance: BRENTUXIMAB VEDOTIN
     Indication: Anaplastic large cell lymphoma T- and null-cell types
     Dosage: 100 MG, EVERY 3 WEEKS (2ND CYCLE)
     Route: 042
     Dates: start: 20231221
  3. ADCETRIS [Suspect]
     Active Substance: BRENTUXIMAB VEDOTIN
     Dosage: 100 MG, EVERY 3 WEEKS (3RD CYCLE)
     Route: 042
  4. ADCETRIS [Suspect]
     Active Substance: BRENTUXIMAB VEDOTIN
     Dosage: 100 MG, EVERY 3 WEEKS (4TH CYCLE)
     Route: 042
     Dates: start: 20240304
  5. ADCETRIS [Suspect]
     Active Substance: BRENTUXIMAB VEDOTIN
     Dosage: 100 MG, EVERY 3 WEEKS
     Route: 042
     Dates: start: 20240531
  6. ADCETRIS [Suspect]
     Active Substance: BRENTUXIMAB VEDOTIN
     Dosage: 100 MG, EVERY 3 WEEKS
     Route: 042
     Dates: start: 20240625
  7. ADCETRIS [Suspect]
     Active Substance: BRENTUXIMAB VEDOTIN
     Dosage: 100 MG, EVERY 3 WEEKS
     Route: 042
     Dates: start: 20240805
  8. ADCETRIS [Suspect]
     Active Substance: BRENTUXIMAB VEDOTIN
     Dosage: 100 MG, EVERY 3 WEEKS
     Route: 042
     Dates: start: 20240826, end: 20240826
  9. CYTARABINE [Suspect]
     Active Substance: CYTARABINE
     Indication: Peripheral T-cell lymphoma unspecified
     Dates: start: 20231123
  10. CYTARABINE [Suspect]
     Active Substance: CYTARABINE
     Indication: Anaplastic large cell lymphoma T- and null-cell types
     Dates: start: 20231221
  11. CYTARABINE [Suspect]
     Active Substance: CYTARABINE
     Dates: start: 20240304
  12. DEXAMETHASONE SODIUM PHOSPHATE [Suspect]
     Active Substance: DEXAMETHASONE SODIUM PHOSPHATE
     Indication: Peripheral T-cell lymphoma unspecified
     Dates: start: 20231123
  13. DEXAMETHASONE SODIUM PHOSPHATE [Suspect]
     Active Substance: DEXAMETHASONE SODIUM PHOSPHATE
     Indication: Anaplastic large cell lymphoma T- and null-cell types
     Dates: start: 20231221
  14. DEXAMETHASONE SODIUM PHOSPHATE [Suspect]
     Active Substance: DEXAMETHASONE SODIUM PHOSPHATE
     Dates: start: 20240304
  15. CISPLATIN [Suspect]
     Active Substance: CISPLATIN
     Indication: Peripheral T-cell lymphoma unspecified
     Dates: start: 20231123
  16. CISPLATIN [Suspect]
     Active Substance: CISPLATIN
     Indication: Anaplastic large cell lymphoma T- and null-cell types
     Dates: start: 20231221
  17. CISPLATIN [Suspect]
     Active Substance: CISPLATIN
     Dates: start: 20240304
  18. BENDAMUSTINE [Suspect]
     Active Substance: BENDAMUSTINE
     Indication: Peripheral T-cell lymphoma unspecified
     Dates: start: 20240531
  19. BENDAMUSTINE [Suspect]
     Active Substance: BENDAMUSTINE
     Indication: Anaplastic large cell lymphoma T- and null-cell types
     Dates: start: 20240625
  20. NIVOLUMAB [Suspect]
     Active Substance: NIVOLUMAB
     Indication: Peripheral T-cell lymphoma unspecified
     Dates: start: 20240805
  21. NIVOLUMAB [Suspect]
     Active Substance: NIVOLUMAB
     Indication: Anaplastic large cell lymphoma T- and null-cell types
     Dates: start: 20240826
  22. NIVOLUMAB [Suspect]
     Active Substance: NIVOLUMAB
     Dates: start: 20241003
  23. NIVOLUMAB [Suspect]
     Active Substance: NIVOLUMAB
     Dates: start: 20241024
  24. NIVOLUMAB [Suspect]
     Active Substance: NIVOLUMAB
     Dates: start: 20241120
  25. NIVOLUMAB [Suspect]
     Active Substance: NIVOLUMAB
     Dates: start: 20241216
  26. GEMCITABINE HYDROCHLORIDE\OXALIPLATIN [Suspect]
     Active Substance: GEMCITABINE HYDROCHLORIDE\OXALIPLATIN
     Indication: Peripheral T-cell lymphoma unspecified
     Dates: start: 20241003
  27. GEMCITABINE HYDROCHLORIDE\OXALIPLATIN [Suspect]
     Active Substance: GEMCITABINE HYDROCHLORIDE\OXALIPLATIN
     Indication: Anaplastic large cell lymphoma T- and null-cell types
     Dates: start: 20241024
  28. GEMCITABINE HYDROCHLORIDE\OXALIPLATIN [Suspect]
     Active Substance: GEMCITABINE HYDROCHLORIDE\OXALIPLATIN
     Dates: start: 20241120
  29. GEMCITABINE HYDROCHLORIDE\OXALIPLATIN [Suspect]
     Active Substance: GEMCITABINE HYDROCHLORIDE\OXALIPLATIN
     Dates: start: 20241216

REACTIONS (5)
  - Anaplastic large cell lymphoma T- and null-cell types [Fatal]
  - Malignant neoplasm progression [Fatal]
  - Septic shock [Fatal]
  - Systemic candida [Fatal]
  - Therapy non-responder [Unknown]
